FAERS Safety Report 6279282-X (Version None)
Quarter: 2009Q3

REPORT INFORMATION
  Report Type: 
  Country: None (occurrence: None)
  Receive Date: 20090723
  Receipt Date: 20081105
  Transmission Date: 20100115
  Serious: No
  Sender: FDA-Public Use
  Company Number: US-AMGEN-KDL317530

PATIENT

DRUGS (2)
  1. EPOGEN [Suspect]
     Indication: ANAEMIA OF MALIGNANT DISEASE
  2. TAMOXIFEN CITRATE [Concomitant]

REACTIONS (1)
  - HAEMOGLOBIN DECREASED [None]
